FAERS Safety Report 4950022-7 (Version None)
Quarter: 2006Q1

REPORT INFORMATION
  Report Type: 
  Country: None (occurrence: None)
  Receive Date: 20060315
  Receipt Date: 20060301
  Transmission Date: 20060701
  Serious: Yes (Death, Disabling)
  Sender: FDA-Public Use
  Company Number: EWC051147192

PATIENT
  Age: 52 Year
  Sex: Male

DRUGS (4)
  1. GEMZAR [Suspect]
     Indication: PANCREATIC CARCINOMA
     Dosage: SEE IMAGE
     Dates: start: 20051011
  2. GEMZAR [Suspect]
     Indication: PANCREATIC CARCINOMA
     Dosage: SEE IMAGE
     Dates: start: 20051122
  3. HALDOL SOLUTAB [Concomitant]
  4. KLEXANE (HEPARIN-FRACTION, SODIUM SALT) [Concomitant]

REACTIONS (10)
  - BACK PAIN [None]
  - DEHYDRATION [None]
  - DYSSTASIA [None]
  - HEPATOMEGALY [None]
  - MALIGNANT NEOPLASM PROGRESSION [None]
  - METASTATIC PAIN [None]
  - MUSCLE SPASMS [None]
  - PANCREATIC CARCINOMA METASTATIC [None]
  - SPINAL COLUMN STENOSIS [None]
  - THROMBOCYTOPENIA [None]
